FAERS Safety Report 14732503 (Version 1)
Quarter: 2018Q2

REPORT INFORMATION
  Report Type: Spontaneous
  Country: FR (occurrence: FR)
  Receive Date: 20180409
  Receipt Date: 20180409
  Transmission Date: 20180711
  Serious: Yes (Other)
  Sender: FDA-Public Use
  Company Number: FR-SUN PHARMACEUTICAL INDUSTRIES LTD-2018RR-169391

PATIENT
  Age: 33 Year
  Sex: Male

DRUGS (1)
  1. QUETIAPINE. [Suspect]
     Active Substance: QUETIAPINE
     Indication: PRODUCT USED FOR UNKNOWN INDICATION
     Dosage: ()
     Route: 048
     Dates: start: 201802, end: 20180301

REACTIONS (4)
  - Visual impairment [Recovered/Resolved]
  - Agitation [Recovered/Resolved]
  - Amnesia [Recovered/Resolved]
  - Pyromania [Recovered/Resolved]
